FAERS Safety Report 4812844-2 (Version None)
Quarter: 2005Q4

REPORT INFORMATION
  Report Type: 
  Country: None (occurrence: None)
  Receive Date: 20051028
  Receipt Date: 20041124
  Transmission Date: 20060501
  Serious: No
  Sender: FDA-Public Use
  Company Number: US-GLAXOSMITHKLINE-A0535167A

PATIENT
  Age: 70 Year
  Sex: Male

DRUGS (11)
  1. ADVAIR DISKUS 100/50 [Suspect]
     Indication: ASTHMA
     Route: 055
     Dates: start: 20021101
  2. LISINOPRIL [Concomitant]
     Route: 065
  3. NIFEDIPINE [Concomitant]
  4. SYNTHROID [Concomitant]
  5. LIPITOR [Concomitant]
  6. NEXIUM [Concomitant]
  7. ALLOPURINOL [Concomitant]
     Route: 065
  8. FLOMAX [Concomitant]
  9. AVODART [Concomitant]
  10. FLONASE [Concomitant]
  11. VIAGRA [Concomitant]
     Route: 065

REACTIONS (2)
  - DRUG INEFFECTIVE [None]
  - PRODUCTIVE COUGH [None]
